FAERS Safety Report 12204071 (Version 1)
Quarter: 2016Q1

REPORT INFORMATION
  Report Type: Spontaneous
  Country: US (occurrence: None)
  Receive Date: 20160322
  Receipt Date: 20160322
  Transmission Date: 20160526
  Serious: No
  Sender: FDA-Public Use
  Company Number: None

PATIENT
  Age: 87 Year
  Sex: Male
  Weight: 87.7 kg

DRUGS (1)
  1. LISINOPRIL. [Suspect]
     Active Substance: LISINOPRIL
     Indication: DRUG THERAPY
     Route: 048
     Dates: start: 20131101, end: 20150909

REACTIONS (2)
  - Cerebrovascular accident [None]
  - Lip swelling [None]

NARRATIVE: CASE EVENT DATE: 20150814
